FAERS Safety Report 5622601-5 (Version None)
Quarter: 2008Q1

REPORT INFORMATION
  Report Type: 
  Country: None (occurrence: None)
  Receive Date: 20080211
  Receipt Date: 20080211
  Transmission Date: 20080703
  Serious: Yes (Hospitalization)
  Sender: FDA-Public Use
  Company Number: None

PATIENT
  Age: 57 Year
  Sex: Female
  Weight: 57 kg

DRUGS (7)
  1. TORADOL [Suspect]
     Indication: PAIN
     Dosage: 60 MG IM X1
     Route: 030
  2. ALBUTEROL [Concomitant]
  3. LISINOPRIL AND HYDROCHLOROTHIAZIDE [Concomitant]
  4. LYRICA [Concomitant]
  5. METFORMIN HCL [Concomitant]
  6. PREDNISONE TAB [Concomitant]
  7. TRAMADOL HCL [Concomitant]

REACTIONS (2)
  - NO THERAPEUTIC RESPONSE [None]
  - WHEEZING [None]
